FAERS Safety Report 15591394 (Version 7)
Quarter: 2022Q1

REPORT INFORMATION
  Report Type: Spontaneous
  Country: US (occurrence: US)
  Receive Date: 20181106
  Receipt Date: 20220217
  Transmission Date: 20220423
  Serious: No
  Sender: FDA-Public Use
  Company Number: US-PFIZER INC-2018076346

PATIENT
  Age: 5 Year
  Sex: Male
  Weight: 14 kg

DRUGS (2)
  1. GENOTROPIN [Suspect]
     Active Substance: SOMATROPIN
     Dosage: 0.6 MG, DAILY
     Dates: start: 201712
  2. GENOTROPIN [Suspect]
     Active Substance: SOMATROPIN
     Dosage: 5 MG, ONCE DAILY
     Dates: start: 201712

REACTIONS (6)
  - Abdominal pain upper [Unknown]
  - Drug dose omission by device [Unknown]
  - Device use error [Unknown]
  - Device difficult to use [Unknown]
  - Device physical property issue [Unknown]
  - Device breakage [Unknown]

NARRATIVE: CASE EVENT DATE: 20210201
